FAERS Safety Report 18361616 (Version 2)
Quarter: 2021Q1

REPORT INFORMATION
  Report Type: Spontaneous
  Country: IT (occurrence: IT)
  Receive Date: 20201008
  Receipt Date: 20210112
  Transmission Date: 20210419
  Serious: Yes (Hospitalization, Other)
  Sender: FDA-Public Use
  Company Number: IT-PFIZER INC-2020384622

PATIENT
  Age: 60 Year
  Sex: Female

DRUGS (1)
  1. METHYLPREDNISOLONE SODIUM SUCCINATE. [Suspect]
     Active Substance: METHYLPREDNISOLONE SODIUM SUCCINATE
     Dosage: 120 MG, 2X/DAY (HIGH?DOSAGE, 120 MG 3 MG/KG/D INTRAVENOUS)
     Route: 042

REACTIONS (2)
  - Atrial fibrillation [Recovered/Resolved]
  - Pneumonia [Unknown]
